FAERS Safety Report 9684072 (Version 2)
Quarter: 2013Q4

REPORT INFORMATION
  Report Type: Report from Study
  Country: US (occurrence: US)
  Receive Date: 20131112
  Receipt Date: 20131112
  Transmission Date: 20140711
  Serious: Yes (Hospitalization, Other)
  Sender: FDA-Public Use
  Company Number: US-ACTELION-A-NJ2013-79049

PATIENT
  Age: 60 Year
  Sex: Female

DRUGS (4)
  1. VELETRI [Suspect]
     Indication: PULMONARY ARTERIAL HYPERTENSION
     Dosage: 52 NG/KG, PER MIN
     Route: 042
  2. VELETRI [Suspect]
     Dosage: 51 NG/KG, PER MIN
     Route: 042
     Dates: start: 20130731
  3. VELETRI [Suspect]
     Dosage: 43 NG/KG, PER MIN
     Route: 041
     Dates: start: 20120904
  4. SILDENAFIL [Concomitant]

REACTIONS (4)
  - Renal failure [Unknown]
  - Epistaxis [Recovered/Resolved]
  - Renal cyst [Unknown]
  - Renal mass [Unknown]
